FAERS Safety Report 8661741 (Version 2)
Quarter: 2012Q4

REPORT INFORMATION
  Report Type: 
  Country: US (occurrence: US)
  Receive Date: 20120712
  Receipt Date: 20120927
  Transmission Date: 20130627
  Serious: Yes (Hospitalization, Other)
  Sender: FDA-Public Use
  Company Number: US-ELI_LILLY_AND_COMPANY-US201201006246

PATIENT
  Age: 68 Year
  Sex: Female

DRUGS (5)
  1. FORTEO [Suspect]
     Indication: OSTEOPOROSIS
     Dosage: UNK, unknown
     Route: 065
     Dates: start: 201110, end: 201201
  2. FORTEO [Suspect]
     Dosage: UNK
     Dates: start: 201209
  3. VALTREX [Concomitant]
     Dosage: UNK
  4. FEMHRT [Concomitant]
     Dosage: UNK
  5. CALCIUM [Concomitant]
     Indication: BONE DISORDER
     Dosage: UNK

REACTIONS (14)
  - Surgery [Recovering/Resolving]
  - Surgery [Recovering/Resolving]
  - Procedural haemorrhage [Unknown]
  - Heart rate increased [Unknown]
  - Anaemia [Unknown]
  - Mobility decreased [Unknown]
  - Feeling abnormal [Unknown]
  - Malaise [Unknown]
  - Haemoglobin decreased [Unknown]
  - Musculoskeletal discomfort [Unknown]
  - Dyspnoea [Unknown]
  - Anaemia [Unknown]
  - Arteriovenous malformation [Unknown]
  - Haemorrhage [Unknown]
